FAERS Safety Report 17754437 (Version 1)
Quarter: 2020Q2

REPORT INFORMATION
  Report Type: Spontaneous
  Country: US (occurrence: US)
  Receive Date: 20200507
  Receipt Date: 20200507
  Transmission Date: 20200714
  Serious: No
  Sender: FDA-Public Use
  Company Number: US-STRIDES ARCOLAB LIMITED-2020SP001418

PATIENT
  Sex: Male

DRUGS (6)
  1. CLONAZEPAM. [Suspect]
     Active Substance: CLONAZEPAM
     Indication: BACK PAIN
     Dosage: UNK
     Route: 065
  2. DUTASTERIDE. [Suspect]
     Active Substance: DUTASTERIDE
     Indication: PROSTATIC DISORDER
     Dosage: UNK
     Route: 065
     Dates: start: 201902
  3. GABAPENTIN. [Suspect]
     Active Substance: GABAPENTIN
     Indication: PAIN
     Dosage: UNK
     Route: 065
  4. GABAPENTIN. [Suspect]
     Active Substance: GABAPENTIN
     Indication: GROIN PAIN
  5. TRAMADOL. [Concomitant]
     Active Substance: TRAMADOL
     Indication: HERNIA PAIN
  6. TRAMADOL. [Concomitant]
     Active Substance: TRAMADOL
     Indication: INGUINAL HERNIA
     Dosage: UNK
     Route: 065

REACTIONS (5)
  - Off label use [Unknown]
  - Negative thoughts [Unknown]
  - Depression [Unknown]
  - Dihydrotestosterone increased [Unknown]
  - Head discomfort [Unknown]
